FAERS Safety Report 9894472 (Version 2)
Quarter: 2014Q2

REPORT INFORMATION
  Report Type: Spontaneous
  Country: US (occurrence: US)
  Receive Date: 20140213
  Receipt Date: 20140403
  Transmission Date: 20141212
  Serious: Yes (Congenital Anomaly, Other)
  Sender: FDA-Public Use
  Company Number: US-PFIZER INC-2014039954

PATIENT
  Sex: Female

DRUGS (10)
  1. ZOLOFT [Suspect]
     Dosage: UNK
     Route: 064
     Dates: start: 200202, end: 2008
  2. SERTRALINE HCL [Suspect]
     Dosage: UNK
     Route: 064
     Dates: start: 200202, end: 2008
  3. LEXAPRO [Suspect]
     Dosage: UNK
     Route: 064
  4. BUPROPION [Concomitant]
     Dosage: UNK
     Route: 064
  5. TRAZODONE [Concomitant]
     Dosage: UNK
     Route: 064
  6. NUVARING [Concomitant]
     Dosage: UNK
     Route: 064
  7. ALBUTEROL [Concomitant]
     Dosage: UNK
     Route: 064
  8. ACETAMINOPHEN [Concomitant]
     Dosage: UNK
     Route: 064
  9. HYDROXYZINE [Concomitant]
     Dosage: UNK
     Route: 064
  10. NATELLE [Concomitant]
     Dosage: UNK
     Route: 064

REACTIONS (5)
  - Maternal exposure during pregnancy [Unknown]
  - Congenital aortic stenosis [Unknown]
  - Bicuspid aortic valve [Unknown]
  - Atrial septal defect [Unknown]
  - Ventricular dysfunction [Unknown]
